FAERS Safety Report 21352801 (Version 2)
Quarter: 2022Q4

REPORT INFORMATION
  Report Type: Spontaneous
  Country: US (occurrence: US)
  Receive Date: 20220920
  Receipt Date: 20221011
  Transmission Date: 20230112
  Serious: No
  Sender: FDA-Public Use
  Company Number: US-ALK-ABELLO A/S-2022AA002742

PATIENT

DRUGS (11)
  1. ALTERNARIA ALTERNATA [Suspect]
     Active Substance: ALTERNARIA ALTERNATA
     Indication: Product used for unknown indication
     Dosage: UNK
     Dates: start: 20220208
  2. FELIS CATUS HAIR [Suspect]
     Active Substance: FELIS CATUS HAIR
     Indication: Product used for unknown indication
     Dosage: UNK
     Dates: start: 20220208
  3. CANIS LUPUS FAMILIARIS SKIN [Suspect]
     Active Substance: CANIS LUPUS FAMILIARIS SKIN
     Indication: Product used for unknown indication
     Dosage: UNK
     Dates: start: 20220208
  4. CLADOSPORIUM CLADOSPORIOIDES [Suspect]
     Active Substance: CLADOSPORIUM CLADOSPORIOIDES
     Indication: Product used for unknown indication
     Dosage: UNK
     Dates: start: 20220208
  5. EPICOCCUM NIGRUM [Suspect]
     Active Substance: EPICOCCUM NIGRUM
     Indication: Product used for unknown indication
     Dosage: UNK
     Dates: start: 20220208
  6. HELMINTHOSPORIUM SOLANI [Suspect]
     Active Substance: HELMINTHOSPORIUM SOLANI
     Indication: Product used for unknown indication
     Dosage: UNK
     Dates: start: 20220208
  7. SAROCLADIUM STRICTUM [Suspect]
     Active Substance: SAROCLADIUM STRICTUM
     Indication: Product used for unknown indication
     Dosage: UNK
     Dates: start: 20220208
  8. ALLEGRA ALLERGY [Concomitant]
     Active Substance: FEXOFENADINE HYDROCHLORIDE
  9. SINGULAIR [Concomitant]
     Active Substance: MONTELUKAST SODIUM
  10. LISINOPRIL [Concomitant]
     Active Substance: LISINOPRIL
  11. TRAZODONE [Concomitant]
     Active Substance: TRAZODONE HYDROCHLORIDE

REACTIONS (2)
  - Injection site reaction [Recovered/Resolved]
  - Injection site reaction [Recovered/Resolved]
